FAERS Safety Report 5925560-0 (Version None)
Quarter: 2008Q4

REPORT INFORMATION
  Report Type: 
  Country: None (occurrence: None)
  Receive Date: 20081021
  Receipt Date: 20081016
  Transmission Date: 20090506
  Serious: Yes (Hospitalization)
  Sender: FDA-Public Use
  Company Number: CH-ABBOTT-08P-151-0471567-00

PATIENT
  Sex: Female

DRUGS (6)
  1. HUMIRA [Suspect]
     Indication: CROHN'S DISEASE
     Dosage: SINGLE DOSE
     Route: 058
     Dates: start: 20080805, end: 20080805
  2. HUMIRA [Suspect]
     Indication: COLITIS ULCERATIVE
  3. STEROIDS [Suspect]
     Indication: CROHN'S DISEASE
     Dosage: STARTED BEGINNING OF AUG 2008
     Route: 042
     Dates: start: 20080801, end: 20080801
  4. STEROIDS [Suspect]
     Indication: COLITIS ULCERATIVE
  5. AZATHIOPRINE [Concomitant]
     Indication: CROHN'S DISEASE
     Route: 048
     Dates: start: 20070501, end: 20080816
  6. PREDNISONE TAB [Concomitant]
     Indication: CROHN'S DISEASE
     Route: 048
     Dates: start: 20051001, end: 20080826

REACTIONS (26)
  - CARDIOMYOPATHY [None]
  - CARDIOTOXICITY [None]
  - COLITIS ULCERATIVE [None]
  - CONDITION AGGRAVATED [None]
  - CONFUSIONAL STATE [None]
  - CROHN'S DISEASE [None]
  - DEPRESSED LEVEL OF CONSCIOUSNESS [None]
  - DILATATION VENTRICULAR [None]
  - DISORIENTATION [None]
  - GENERAL PHYSICAL HEALTH DETERIORATION [None]
  - HAEMODIALYSIS [None]
  - HAEMODYNAMIC INSTABILITY [None]
  - HYPOKINESIA [None]
  - HYPOTENSION [None]
  - INFECTION [None]
  - LEFT ATRIAL DILATATION [None]
  - LEFT VENTRICULAR FAILURE [None]
  - MITRAL VALVE INCOMPETENCE [None]
  - PLEURAL EFFUSION [None]
  - PNEUMONIA [None]
  - PULMONARY OEDEMA [None]
  - RENAL FAILURE ACUTE [None]
  - RESPIRATORY FAILURE [None]
  - SEPSIS [None]
  - SINUS TACHYCARDIA [None]
  - TRICUSPID VALVE INCOMPETENCE [None]
